FAERS Safety Report 6834885-6 (Version None)
Quarter: 2010Q3

REPORT INFORMATION
  Report Type: 
  Country: None (occurrence: None)
  Receive Date: 20100712
  Receipt Date: 20070412
  Transmission Date: 20110219
  Serious: No
  Sender: FDA-Public Use
  Company Number: US-PFIZER INC-2007030592

PATIENT
  Sex: Female
  Weight: 45.36 kg

DRUGS (7)
  1. CHANTIX [Suspect]
     Indication: SMOKING CESSATION THERAPY
     Dates: start: 20070101, end: 20070101
  2. ADVAIR DISKUS 100/50 [Concomitant]
  3. DUONEB [Concomitant]
     Route: 055
  4. COUGH AND COLD PREPARATIONS [Concomitant]
  5. FLORINEF [Concomitant]
     Indication: HYPOTENSION
  6. KLONOPIN [Concomitant]
     Indication: PANIC ATTACK
  7. SPIRIVA [Concomitant]

REACTIONS (1)
  - RESPIRATORY DISORDER [None]
